FAERS Safety Report 19356459 (Version 1)
Quarter: 2021Q2

REPORT INFORMATION
  Report Type: Spontaneous
  Country: US (occurrence: US)
  Receive Date: 20210531
  Receipt Date: 20210531
  Transmission Date: 20210717
  Serious: Yes (Disabling, Other)
  Sender: FDA-Public Use
  Company Number: US-PURDUE-USA-2020-0199753

PATIENT
  Sex: Female

DRUGS (1)
  1. OXYCODONE HCL TABLETS (RHODES 91?490) [Suspect]
     Active Substance: OXYCODONE HYDROCHLORIDE
     Indication: CAESAREAN SECTION
     Dosage: UNK
     Route: 048

REACTIONS (8)
  - Hyperhidrosis [Unknown]
  - Drug dependence [Unknown]
  - Constipation [Unknown]
  - Nausea [Unknown]
  - Nasopharyngitis [Unknown]
  - Hyperaesthesia [Unknown]
  - Learning disability [Unknown]
  - Hypopnoea [Unknown]
